FAERS Safety Report 22812115 (Version 6)
Quarter: 2023Q4

REPORT INFORMATION
  Report Type: Spontaneous
  Country: CA (occurrence: CA)
  Receive Date: 20230811
  Receipt Date: 20231108
  Transmission Date: 20240110
  Serious: Yes (Hospitalization)
  Sender: FDA-Public Use
  Company Number: CA-CELLTRION INC.-2023CA014832

PATIENT

DRUGS (8)
  1. INFLECTRA [Suspect]
     Active Substance: INFLIXIMAB-DYYB
     Indication: Colitis ulcerative
     Dosage: EVERY 8 WEEKS, INDUCTION 0, DAY 10+WK 6 THEN MAINTENANCE EVERY 8 WKS
     Route: 042
     Dates: start: 20230721
  2. INFLECTRA [Suspect]
     Active Substance: INFLIXIMAB-DYYB
     Dosage: 1 DF, RESCUE DOSE, INFUSED IN HOSPITAL
     Route: 042
     Dates: start: 20230728, end: 20230728
  3. INFLECTRA [Suspect]
     Active Substance: INFLIXIMAB-DYYB
     Dosage: 1000 MG, 10 WKS + 5 DAYS (SUPPOSED TO RECEIVE 800 MG AND PRESCRIBED TREATMENT: WK 6 OF INDUCTION)
     Route: 042
     Dates: start: 20231011
  4. INFLECTRA [Suspect]
     Active Substance: INFLIXIMAB-DYYB
     Dosage: 1000 MG, 10 WKS + 5 DAYS (SUPPOSED TO RECEIVE 800 MG AND PRESCRIBED TREATMENT: WK 6 OF INDUCTION)
     Route: 042
     Dates: start: 20231011
  5. EFFEXOR [Concomitant]
     Active Substance: VENLAFAXINE HYDROCHLORIDE
     Dosage: UNK
  6. METFORMIN [Concomitant]
     Active Substance: METFORMIN HYDROCHLORIDE
     Dosage: UNK
  7. PREDNISONE [Concomitant]
     Active Substance: PREDNISONE
     Dosage: UNK
  8. SYNTHROID [Concomitant]
     Active Substance: LEVOTHYROXINE SODIUM
     Dosage: UNK

REACTIONS (4)
  - Malaise [Not Recovered/Not Resolved]
  - Treatment failure [Unknown]
  - Off label use [Unknown]
  - Incorrect dose administered [Unknown]

NARRATIVE: CASE EVENT DATE: 20230728
